FAERS Safety Report 7942606-9 (Version None)
Quarter: 2011Q4

REPORT INFORMATION
  Report Type: 
  Country: None (occurrence: None)
  Receive Date: 20111128
  Receipt Date: 20090512
  Transmission Date: 20120403
  Serious: Yes (Hospitalization)
  Sender: FDA-Public Use
  Company Number: GB-GLAXOSMITHKLINE-Z0000930A

PATIENT
  Sex: Male
  Weight: 63.8 kg

DRUGS (1)
  1. PAZOPANIB [Suspect]
     Indication: RENAL CELL CARCINOMA
     Dosage: 800MG PER DAY
     Route: 048
     Dates: start: 20090306, end: 20090520

REACTIONS (1)
  - SPINAL CORD COMPRESSION [None]
